FAERS Safety Report 7806198-7 (Version None)
Quarter: 2011Q4

REPORT INFORMATION
  Report Type: 
  Country: None (occurrence: None)
  Receive Date: 20111011
  Receipt Date: 20110926
  Transmission Date: 20120403
  Serious: Yes (Hospitalization, Disabling)
  Sender: FDA-Public Use
  Company Number: US-MYLANLABS-2011S1020929

PATIENT
  Sex: Male

DRUGS (14)
  1. CIALIS [Concomitant]
  2. GLYBURIDE [Concomitant]
     Indication: DIABETES MELLITUS
  3. DIGOXIN [Suspect]
     Indication: GASTROOESOPHAGEAL REFLUX DISEASE
     Route: 048
     Dates: start: 20080501, end: 20090201
  4. TAGAMET [Concomitant]
     Indication: GASTROOESOPHAGEAL REFLUX DISEASE
  5. LISINOPRIL [Concomitant]
     Indication: HYPERTENSION
  6. BUSPAR [Concomitant]
     Indication: ANXIETY
  7. REGLAN [Concomitant]
     Indication: GASTROOESOPHAGEAL REFLUX DISEASE
  8. BENICAR [Concomitant]
  9. ATIVAN [Concomitant]
     Indication: ANXIETY
  10. PRISTIQ [Concomitant]
  11. ZANTAC [Concomitant]
     Indication: GASTROOESOPHAGEAL REFLUX DISEASE
  12. VIAGRA [Concomitant]
  13. AMBIEN [Concomitant]
     Indication: INSOMNIA
  14. PAXIL [Concomitant]

REACTIONS (24)
  - DRUG INEFFECTIVE [None]
  - ERECTILE DYSFUNCTION [None]
  - ANXIETY [None]
  - DIZZINESS [None]
  - DEPRESSION [None]
  - DRUG LEVEL BELOW THERAPEUTIC [None]
  - CHEST PAIN [None]
  - NAUSEA [None]
  - NODULE [None]
  - DISABILITY [None]
  - ANHEDONIA [None]
  - LIBIDO DECREASED [None]
  - PAIN [None]
  - TRANSIENT ISCHAEMIC ATTACK [None]
  - GASTROOESOPHAGEAL REFLUX DISEASE [None]
  - INJURY [None]
  - LIFE EXPECTANCY SHORTENED [None]
  - FATIGUE [None]
  - EMOTIONAL DISTRESS [None]
  - ECONOMIC PROBLEM [None]
  - ILL-DEFINED DISORDER [None]
  - HOSPITALISATION [None]
  - DYSPEPSIA [None]
  - POOR QUALITY DRUG ADMINISTERED [None]
